FAERS Safety Report 4350129-1 (Version None)
Quarter: 2004Q2

REPORT INFORMATION
  Report Type: 
  Country: None (occurrence: None)
  Receive Date: 20040429
  Receipt Date: 20040423
  Transmission Date: 20050107
  Serious: Yes (Other)
  Sender: FDA-Public Use
  Company Number: JP-ROCHE-365135

PATIENT
  Sex: Female

DRUGS (2)
  1. ANEXATE [Suspect]
     Indication: DRUG USE FOR UNKNOWN INDICATION
     Dosage: FORM: CONTINUOUS DRIP INFUSION.
     Route: 042
  2. DORMICUM (INJ) [Suspect]
     Indication: SEDATION
     Route: 042

REACTIONS (2)
  - DEPRESSED LEVEL OF CONSCIOUSNESS [None]
  - HYPERVENTILATION [None]
